FAERS Safety Report 18398376 (Version 1)
Quarter: 2020Q4

REPORT INFORMATION
  Report Type: Spontaneous
  Country: US (occurrence: US)
  Receive Date: 20201019
  Receipt Date: 20201019
  Transmission Date: 20210114
  Serious: No
  Sender: FDA-Public Use
  Company Number: US-AMGEN-USASP2020166672

PATIENT
  Sex: Female

DRUGS (8)
  1. RITUXAN [Concomitant]
     Active Substance: RITUXIMAB
     Dosage: UNK, Q4WK
     Dates: start: 201707
  2. CHLORAMBUCIL [Concomitant]
     Active Substance: CHLORAMBUCIL
  3. NPLATE [Suspect]
     Active Substance: ROMIPLOSTIM
     Indication: IMMUNE THROMBOCYTOPENIA
     Dosage: 8.35 MICROGRAM, QWK
     Route: 065
     Dates: start: 20170801
  4. IVIGLOB EX [Concomitant]
     Active Substance: HUMAN IMMUNOGLOBULIN G
     Dosage: UNK, Q4WK
  5. FOSTAMATINIB [Concomitant]
     Active Substance: FOSTAMATINIB
     Dosage: 150 MILLIGRAM, BID
     Dates: start: 201904
  6. GAZYVA [Concomitant]
     Active Substance: OBINUTUZUMAB
  7. DEXAMETHASONE. [Concomitant]
     Active Substance: DEXAMETHASONE
     Route: 048
  8. VENETOCLAX. [Concomitant]
     Active Substance: VENETOCLAX

REACTIONS (2)
  - Therapeutic response decreased [Unknown]
  - Adverse event [Unknown]
